FAERS Safety Report 12634256 (Version 2)
Quarter: 2016Q3

REPORT INFORMATION
  Report Type: Report from Study
  Country: US (occurrence: US)
  Receive Date: 20160808
  Receipt Date: 20160923
  Transmission Date: 20161109
  Serious: Yes (Hospitalization, Other)
  Sender: FDA-Public Use
  Company Number: US-IPSEN BIOPHARMACEUTICALS, INC.-2016-06581

PATIENT
  Age: 82 Year
  Sex: Male
  Weight: 65.77 kg

DRUGS (1)
  1. SOMATULINE DEPOT [Suspect]
     Active Substance: LANREOTIDE ACETATE
     Indication: CARCINOID TUMOUR
     Dosage: 120 MG
     Route: 065
     Dates: start: 20150715, end: 20151201

REACTIONS (13)
  - Muscular weakness [Recovering/Resolving]
  - Head injury [Recovering/Resolving]
  - Somnolence [Recovering/Resolving]
  - Dysstasia [Recovering/Resolving]
  - Hepatic encephalopathy [Recovering/Resolving]
  - Fall [Recovering/Resolving]
  - Bedridden [Recovered/Resolved]
  - Asthenia [Recovering/Resolving]
  - Inappropriate schedule of drug administration [Unknown]
  - Post procedural complication [Recovered/Resolved]
  - Dysarthria [Recovering/Resolving]
  - Fatigue [Recovering/Resolving]
  - Injection site pain [Recovered/Resolved]

NARRATIVE: CASE EVENT DATE: 2015
